FAERS Safety Report 6479837-3 (Version None)
Quarter: 2009Q4

REPORT INFORMATION
  Report Type: 
  Country: None (occurrence: None)
  Receive Date: 20091208
  Receipt Date: 20091126
  Transmission Date: 20100525
  Serious: Yes (Other)
  Sender: FDA-Public Use
  Company Number: ES-JNJFOC-20090305024

PATIENT
  Sex: Female

DRUGS (4)
  1. REMICADE [Suspect]
     Indication: ANKYLOSING SPONDYLITIS
     Route: 042
     Dates: start: 20040120
  2. FOLIC ACID [Concomitant]
  3. OMEPRAZOLE [Concomitant]
  4. CALCIUM WITH VITAMIN D [Concomitant]

REACTIONS (2)
  - CARDIAC FAILURE CHRONIC [None]
  - CARDIOMEGALY [None]
